FAERS Safety Report 24768123 (Version 3)
Quarter: 2025Q1

REPORT INFORMATION
  Report Type: Spontaneous
  Country: GR (occurrence: GR)
  Receive Date: 20241223
  Receipt Date: 20250218
  Transmission Date: 20250408
  Serious: Yes (Other)
  Sender: IPSEN BIOPHARMACEUTICALS, INC.
  Company Number: GR-IPSEN Group, Research and Development-2024-26385

PATIENT
  Age: 49 Year
  Sex: Male

DRUGS (11)
  1. LANREOTIDE ACETATE [Suspect]
     Active Substance: LANREOTIDE ACETATE
     Indication: Neuroendocrine tumour of the thymus
     Route: 065
  2. LANREOTIDE ACETATE [Suspect]
     Active Substance: LANREOTIDE ACETATE
     Indication: Off label use
  3. METYRAPONE [Concomitant]
     Active Substance: METYRAPONE
  4. OSILODROSTAT [Concomitant]
     Active Substance: OSILODROSTAT
  5. DENOSUMAB [Concomitant]
     Active Substance: DENOSUMAB
  6. LUTETIUM OXODOTREOTIDE LU-177 [Concomitant]
     Active Substance: LUTETIUM OXODOTREOTIDE LU-177
  7. CAPECITABINE [Concomitant]
     Active Substance: CAPECITABINE
     Indication: Disease progression
  8. TEMOZOLOMIDE [Concomitant]
     Active Substance: TEMOZOLOMIDE
     Indication: Disease progression
  9. CARBOPLATIN [Concomitant]
     Active Substance: CARBOPLATIN
     Indication: Disease progression
  10. ETOPOSIDE [Concomitant]
     Active Substance: ETOPOSIDE
     Indication: Disease progression
  11. DOCETAXEL [Concomitant]
     Active Substance: DOCETAXEL
     Indication: Disease progression

REACTIONS (10)
  - Hypokalaemia [Unknown]
  - Hyperglycaemia [Unknown]
  - Visual impairment [Unknown]
  - Memory impairment [Unknown]
  - Weight decreased [Unknown]
  - Face oedema [Unknown]
  - Cortisol increased [Unknown]
  - Localised oedema [Unknown]
  - Parosmia [Unknown]
  - Off label use [Unknown]
